FAERS Safety Report 16017627 (Version 1)
Quarter: 2019Q1

REPORT INFORMATION
  Report Type: Report from Study
  Country: US (occurrence: US)
  Receive Date: 20190228
  Receipt Date: 20190228
  Transmission Date: 20190418
  Serious: Yes (Death, Hospitalization, Other)
  Sender: FDA-Public Use
  Company Number: US-MYLANLABS-2016M1014328

PATIENT
  Age: 75 Year
  Sex: Male
  Weight: 60.7 kg

DRUGS (19)
  1. CALCIUM MAGNESIUM ZINC PLUS VITAMIN D [Concomitant]
     Dosage: UNK
  2. DOCUSATE SODIUM. [Concomitant]
     Active Substance: DOCUSATE SODIUM
     Dosage: UNK
  3. MULTIVITAMINS [Concomitant]
     Active Substance: VITAMINS
     Dosage: NOT PROVIDED
  4. AMINO ACIDS NOS W/VITAMINS NOS [Concomitant]
     Dosage: NOT PROVIDED
  5. HYDROCORTISONE. [Concomitant]
     Active Substance: HYDROCORTISONE
     Dosage: UNK
  6. AMINO ACIDS NOS W/VITAMINS NOS [Concomitant]
     Dosage: UNK
  7. ONDANSETRON [Concomitant]
     Active Substance: ONDANSETRON
     Dosage: UNK
  8. SENOKOT [Concomitant]
     Active Substance: SENNOSIDES
     Dosage: NOT PROVIDED
  9. CITALOPRAM [Concomitant]
     Active Substance: CITALOPRAM HYDROBROMIDE
     Dosage: UNK
  10. SACCHAROMYCES BOULARDII [Concomitant]
     Active Substance: SACCHAROMYCES CEREVISIAE
     Dosage: UNK
  11. LENVATINIB [Suspect]
     Active Substance: LENVATINIB
     Indication: URETERIC CANCER
     Dosage: 20 MG, QD
     Route: 048
     Dates: start: 20160203, end: 20160314
  12. FENTANYL. [Suspect]
     Active Substance: FENTANYL
     Indication: CANCER PAIN
     Dosage: 50 ?G, QH EVERY 3 DAYS AS NEEDED
     Route: 062
     Dates: start: 20160223
  13. MEGESTROL [Concomitant]
     Active Substance: MEGESTROL
     Dosage: UNK
  14. TAMSULOSIN [Concomitant]
     Active Substance: TAMSULOSIN
     Dosage: UNK
  15. PEMBROLIZUMAB. [Suspect]
     Active Substance: PEMBROLIZUMAB
     Indication: URETERIC CANCER
     Dosage: 200 MILLIGRAM, CYCLE ONCE EVERY THREE WEEKS IN A 21 DAY CYCLE
     Route: 042
     Dates: start: 20160203, end: 20160223
  16. OMEPRAZOLE. [Concomitant]
     Active Substance: OMEPRAZOLE
     Dosage: NOT PROVIDED
  17. PSYLLIUM WHOLE HUSKS [Concomitant]
     Dosage: NOT PROVIDED
  18. TRAMADOL. [Suspect]
     Active Substance: TRAMADOL
     Indication: CANCER PAIN
     Dosage: 400 MG, QD AS NEEDED
     Route: 048
     Dates: start: 201510
  19. BISACODYL. [Concomitant]
     Active Substance: BISACODYL
     Dosage: UNK

REACTIONS (2)
  - Malignant neoplasm progression [Fatal]
  - Constipation [Recovered/Resolved]

NARRATIVE: CASE EVENT DATE: 20160315
